FAERS Safety Report 14753366 (Version 1)
Quarter: 2018Q2

REPORT INFORMATION
  Report Type: Report from Study
  Country: BR (occurrence: BR)
  Receive Date: 20180412
  Receipt Date: 20180412
  Transmission Date: 20180711
  Serious: Yes (Other)
  Sender: FDA-Public Use
  Company Number: BR-UCBSA-2018015378

PATIENT
  Age: 51 Year
  Sex: Male

DRUGS (1)
  1. LEVETIRACETAM. [Suspect]
     Active Substance: LEVETIRACETAM
     Indication: SEIZURE
     Dosage: 500 MG IN THE MORNING, 250 MG TAB IN AFTERNOON AND 750 MG TAB AT NIGHT, 3X/DAY (TID)
     Route: 048
     Dates: start: 201710

REACTIONS (2)
  - Carcinoembryonic antigen [Unknown]
  - Off label use [Unknown]

NARRATIVE: CASE EVENT DATE: 201710
